FAERS Safety Report 24248094 (Version 1)
Quarter: 2024Q3

REPORT INFORMATION
  Report Type: Spontaneous
  Country: US (occurrence: US)
  Receive Date: 20240826
  Receipt Date: 20240826
  Transmission Date: 20241017
  Serious: No
  Sender: RECKITT BENCKISER
  Company Number: US-PROD-AS2-212756134-RB-140608-2023

PATIENT
  Age: 76 Year
  Sex: Female
  Weight: 138 kg

DRUGS (3)
  1. MUCINEX MAXIMUM STRENGTH [Suspect]
     Active Substance: GUAIFENESIN
     Indication: Pulmonary congestion
     Dosage: 1 DOSAGE FORM, BID (ONE TABLET EVERY 12 HOURS)
     Route: 048
     Dates: start: 20231101
  2. MUCINEX MAXIMUM STRENGTH [Suspect]
     Active Substance: GUAIFENESIN
     Indication: Sinus congestion
  3. LISINOPRIL [Concomitant]
     Active Substance: LISINOPRIL
     Indication: Hypertension
     Dosage: UNK, QD
     Route: 065

REACTIONS (1)
  - Drug effective for unapproved indication [Not Recovered/Not Resolved]
